FAERS Safety Report 21353993 (Version 1)
Quarter: 2022Q3

REPORT INFORMATION
  Report Type: Spontaneous
  Country: CH (occurrence: CH)
  Receive Date: 20220920
  Receipt Date: 20220920
  Transmission Date: 20221027
  Serious: Yes (Hospitalization)
  Sender: FDA-Public Use
  Company Number: None

PATIENT
  Age: 59 Year
  Sex: Male

DRUGS (2)
  1. MOXIFLOXACIN HYDROCHLORIDE [Suspect]
     Active Substance: MOXIFLOXACIN HYDROCHLORIDE
     Indication: Acute sinusitis
     Dosage: 400 MG, QD
     Route: 048
     Dates: start: 20220810, end: 20220811
  2. DEFLAZACORT [Suspect]
     Active Substance: DEFLAZACORT
     Indication: Acute sinusitis
     Dosage: 30 MG, QD
     Route: 048
     Dates: start: 20220810, end: 20220811

REACTIONS (3)
  - Hypersensitivity [Unknown]
  - Kounis syndrome [Unknown]
  - Urticaria [Unknown]

NARRATIVE: CASE EVENT DATE: 20220810
